FAERS Safety Report 6941309-7 (Version None)
Quarter: 2010Q3

REPORT INFORMATION
  Report Type: 
  Country: None (occurrence: None)
  Receive Date: 20100824
  Receipt Date: 20100824
  Transmission Date: 20110219
  Serious: Yes (Hospitalization, Disabling)
  Sender: FDA-Public Use
  Company Number: None

PATIENT
  Age: 76 Year
  Sex: Female
  Weight: 48.9885 kg

DRUGS (3)
  1. FOSAMAX [Suspect]
     Indication: OSTEOPOROSIS
     Dosage: 70 MG. 1/WK. ORAL
     Route: 048
     Dates: start: 19900101, end: 20100101
  2. LAMICTAL [Concomitant]
  3. FOSAMAX [Concomitant]

REACTIONS (1)
  - CONVULSION [None]
